FAERS Safety Report 23442288 (Version 3)
Quarter: 2024Q1

REPORT INFORMATION
  Report Type: Spontaneous
  Country: US (occurrence: US)
  Receive Date: 20240125
  Receipt Date: 20240220
  Transmission Date: 20240409
  Serious: No
  Sender: FDA-Public Use
  Company Number: US-PFIZER INC-202400005320

PATIENT
  Age: 12 Year
  Sex: Male
  Weight: 52.163 kg

DRUGS (1)
  1. GENOTROPIN [Suspect]
     Active Substance: SOMATROPIN
     Indication: Growth hormone deficiency
     Dosage: COUPLE DIFFERENT INJECTION SITES, ALTERNATES BETWEEN BUTTOCKS AND THIGH
     Dates: start: 2022

REACTIONS (5)
  - Incorrect dose administered by device [Unknown]
  - Poor quality device used [Unknown]
  - Device issue [Unknown]
  - Device leakage [Unknown]
  - Device use error [Unknown]

NARRATIVE: CASE EVENT DATE: 20230101
